FAERS Safety Report 8213179-0 (Version None)
Quarter: 2012Q1

REPORT INFORMATION
  Report Type: 
  Country: None (occurrence: None)
  Receive Date: 20120315
  Receipt Date: 20120308
  Transmission Date: 20120608
  Serious: Yes (Death, Other)
  Sender: FDA-Public Use
  Company Number: DE-ROXANE LABORATORIES, INC.-2012-RO-00849RO

PATIENT
  Age: 19 Year
  Sex: Male

DRUGS (10)
  1. CYCLOPHOSPHAMIDE [Suspect]
     Indication: BONE MARROW CONDITIONING REGIMEN
  2. METRONIDAZOLE [Suspect]
     Indication: ANTIBIOTIC PROPHYLAXIS
  3. MYCOPHENOLATE MOFETIL [Suspect]
     Indication: PROPHYLAXIS AGAINST GRAFT VERSUS HOST DISEASE
  4. RABBIT ANTITHYMOCTYE GLOBULIN [Suspect]
     Indication: BONE MARROW CONDITIONING REGIMEN
  5. ACYCLOVIR [Suspect]
     Indication: ANTIVIRAL PROPHYLAXIS
  6. CYCLOSPORINE [Suspect]
     Indication: PROPHYLAXIS AGAINST GRAFT VERSUS HOST DISEASE
  7. FLUCONAZOLE [Suspect]
     Indication: ANTIFUNGAL PROPHYLAXIS
  8. CLOFARABINE [Suspect]
     Indication: CHEMOTHERAPY
     Route: 042
  9. CYTARABINE [Suspect]
     Indication: CHEMOTHERAPY
     Route: 042
  10. LEVOFLOXACIN [Suspect]
     Indication: ANTIBIOTIC PROPHYLAXIS

REACTIONS (11)
  - PALMAR-PLANTAR ERYTHRODYSAESTHESIA SYNDROME [None]
  - NAUSEA [None]
  - HEPATOTOXICITY [None]
  - OEDEMA [None]
  - BLOOD BILIRUBIN INCREASED [None]
  - DECREASED APPETITE [None]
  - CYSTITIS HAEMORRHAGIC [None]
  - DEATH [None]
  - VOMITING [None]
  - MUCOSAL INFLAMMATION [None]
  - NEPHROPATHY TOXIC [None]
